FAERS Safety Report 23335788 (Version 2)
Quarter: 2024Q1

REPORT INFORMATION
  Report Type: Spontaneous
  Country: GB (occurrence: GB)
  Receive Date: 20231225
  Receipt Date: 20240110
  Transmission Date: 20240410
  Serious: Yes (Hospitalization, Other)
  Sender: FDA-Public Use
  Company Number: GB-BAXTER-2023BAX037145

PATIENT
  Age: 51 Year
  Sex: Female

DRUGS (2)
  1. CISPLATIN [Suspect]
     Active Substance: CISPLATIN
     Indication: Product used for unknown indication
     Dosage: UNK, C1D1
     Route: 065
  2. ETOPOSIDE [Suspect]
     Active Substance: ETOPOSIDE
     Indication: Neoplasm malignant
     Dosage: 20 ML, ABOUT 10 MIN, C1D1
     Route: 042

REACTIONS (9)
  - Oxygen saturation decreased [Recovered/Resolved]
  - Feeling abnormal [Recovered/Resolved]
  - Thermal burn [Recovered/Resolved]
  - Back pain [Recovered/Resolved]
  - Chest discomfort [Unknown]
  - Crepitations [Unknown]
  - Dysphonia [Recovered/Resolved]
  - Flushing [Recovered/Resolved]
  - Pruritus [Recovered/Resolved]

NARRATIVE: CASE EVENT DATE: 20231127
